FAERS Safety Report 4769106-1 (Version None)
Quarter: 2005Q3

REPORT INFORMATION
  Report Type: 
  Country: None (occurrence: None)
  Receive Date: 20050912
  Receipt Date: 20040824
  Transmission Date: 20060218
  Serious: Yes (Hospitalization)
  Sender: FDA-Public Use
  Company Number: 2004-BP-07201BP

PATIENT
  Age: 38 Year
  Sex: Male

DRUGS (3)
  1. VIRAMUNE [Suspect]
     Indication: HIV INFECTION
     Dosage: 400 MG (200 MG, 2 IN 1 D), PO
     Route: 048
     Dates: start: 20040722, end: 20040816
  2. VIREAD [Concomitant]
  3. EPIVIR [Concomitant]

REACTIONS (2)
  - PYREXIA [None]
  - RASH [None]
